FAERS Safety Report 11501672 (Version 1)
Quarter: 2015Q3

REPORT INFORMATION
  Report Type: Spontaneous
  Country: US (occurrence: US)
  Receive Date: 20150914
  Receipt Date: 20150914
  Transmission Date: 20151125
  Serious: Yes (Hospitalization, Other)
  Sender: FDA-Public Use
  Company Number: US-GLAXOSMITHKLINE-US2015130427

PATIENT
  Age: 61 Year
  Sex: Male

DRUGS (16)
  1. COREG CR [Suspect]
     Active Substance: CARVEDILOL PHOSPHATE
     Indication: CARDIOVASCULAR EVENT PROPHYLAXIS
     Route: 048
     Dates: start: 2009
  2. TOUJEO INSULIN [Concomitant]
  3. PREVACID [Concomitant]
     Active Substance: LANSOPRAZOLE
  4. ELIQUIS [Concomitant]
     Active Substance: APIXABAN
  5. HUMULIN R INSULIN [Concomitant]
  6. CQ-10 [Concomitant]
  7. VITAMIN E [Concomitant]
     Active Substance: .ALPHA.-TOCOPHEROL
  8. LORAZEPAM. [Concomitant]
     Active Substance: LORAZEPAM
  9. PLAVIX [Concomitant]
     Active Substance: CLOPIDOGREL BISULFATE
  10. COREG CR [Suspect]
     Active Substance: CARVEDILOL PHOSPHATE
     Indication: BLOOD PRESSURE MEASUREMENT
  11. ASA [Concomitant]
     Active Substance: ASPIRIN
  12. CITALOPRAM [Concomitant]
     Active Substance: CITALOPRAM HYDROBROMIDE
  13. LIPITOR [Concomitant]
     Active Substance: ATORVASTATIN CALCIUM
  14. BUPROPION. [Concomitant]
     Active Substance: BUPROPION
  15. KLOR-CON [Concomitant]
     Active Substance: POTASSIUM CHLORIDE
  16. TORSEMIDE. [Concomitant]
     Active Substance: TORSEMIDE

REACTIONS (4)
  - Myocardial infarction [Recovered/Resolved with Sequelae]
  - Cardiac pacemaker insertion [Unknown]
  - Implantable defibrillator insertion [Unknown]
  - Oxygen supplementation [Unknown]

NARRATIVE: CASE EVENT DATE: 20150409
